FAERS Safety Report 19876964 (Version 1)
Quarter: 2021Q3

REPORT INFORMATION
  Report Type: Spontaneous
  Country: FR (occurrence: FR)
  Receive Date: 20210924
  Receipt Date: 20210924
  Transmission Date: 20211014
  Serious: Yes (Other)
  Sender: FDA-Public Use
  Company Number: FR-TEVA-2021-FR-1955932

PATIENT
  Age: 50 Year
  Sex: Male
  Weight: 52 kg

DRUGS (1)
  1. OXALIPLATINE TEVA [Suspect]
     Active Substance: OXALIPLATIN
     Indication: ADENOCARCINOMA PANCREAS
     Dosage: 28 MG/M2
     Route: 042
     Dates: start: 20210311, end: 20210311

REACTIONS (2)
  - Urticaria [Recovered/Resolved]
  - Type I hypersensitivity [Recovered/Resolved]

NARRATIVE: CASE EVENT DATE: 20210311
